FAERS Safety Report 11232823 (Version 1)
Quarter: 2015Q3

REPORT INFORMATION
  Report Type: Other
  Country: US (occurrence: US)
  Receive Date: 20150701
  Receipt Date: 20150701
  Transmission Date: 20151125
  Serious: Yes (Hospitalization)
  Sender: FDA-Public Use
  Company Number: US-ENDO PHARMACEUTICALS INC-2015-001394

PATIENT
  Age: 55 Year
  Sex: Male

DRUGS (1)
  1. METHIMAZOLE TABLETS [Suspect]
     Active Substance: METHIMAZOLE
     Indication: TOXIC NODULAR GOITRE
     Route: 065

REACTIONS (2)
  - Osteomyelitis [Recovered/Resolved]
  - Hypersensitivity vasculitis [Recovered/Resolved]
